FAERS Safety Report 24017238 (Version 4)
Quarter: 2024Q3

REPORT INFORMATION
  Report Type: Report from Study
  Country: GB (occurrence: GB)
  Receive Date: 20240627
  Receipt Date: 20240726
  Transmission Date: 20241017
  Serious: No
  Sender: JOHNSON AND JOHNSON
  Company Number: GB-JNJFOC-20240611578

PATIENT
  Age: 80 Year
  Sex: Male

DRUGS (9)
  1. STELARA [Suspect]
     Active Substance: USTEKINUMAB
     Indication: Crohn^s disease
     Route: 058
     Dates: start: 20190103
  2. STELARA [Suspect]
     Active Substance: USTEKINUMAB
     Route: 058
     Dates: start: 202402
  3. STELARA [Suspect]
     Active Substance: USTEKINUMAB
  4. STELARA [Suspect]
     Active Substance: USTEKINUMAB
  5. STELARA [Suspect]
     Active Substance: USTEKINUMAB
     Indication: Crohn^s disease
     Route: 058
  6. STELARA [Suspect]
     Active Substance: USTEKINUMAB
  7. STELARA [Suspect]
     Active Substance: USTEKINUMAB
  8. STELARA [Suspect]
     Active Substance: USTEKINUMAB
  9. OMEPRAZOLE [Concomitant]
     Active Substance: OMEPRAZOLE

REACTIONS (5)
  - Needle issue [Unknown]
  - Contusion [Unknown]
  - Procedural complication [Unknown]
  - Off label use [Unknown]
  - Pain [Unknown]

NARRATIVE: CASE EVENT DATE: 20240604
